FAERS Safety Report 10641456 (Version 1)
Quarter: 2014Q4

REPORT INFORMATION
  Report Type: Spontaneous
  Country: US (occurrence: RU)
  Receive Date: 20141209
  Receipt Date: 20141209
  Transmission Date: 20150529
  Serious: Yes (Hospitalization)
  Sender: FDA-Public Use
  Company Number: RU-FRI-1000072947

PATIENT
  Age: 67 Year
  Sex: Male
  Weight: 75 kg

DRUGS (10)
  1. TRENTAL [Concomitant]
     Active Substance: PENTOXIFYLLINE
     Indication: THROMBOSIS PROPHYLAXIS
     Route: 042
     Dates: start: 20141102, end: 20141121
  2. CLEXANE [Concomitant]
     Active Substance: ENOXAPARIN SODIUM
     Indication: THROMBOSIS PROPHYLAXIS
     Route: 058
     Dates: start: 20141102, end: 20141121
  3. CEREPRO [Concomitant]
     Indication: COGNITIVE DISORDER
     Route: 042
     Dates: start: 20141105, end: 20141121
  4. RINGER^S SOLUTION [Concomitant]
     Active Substance: RINGER^S SOLUTION
     Indication: FLUID REPLACEMENT
     Route: 042
     Dates: start: 20141102, end: 20141120
  5. FLUCONAZOLE. [Concomitant]
     Active Substance: FLUCONAZOLE
     Indication: ANTIFUNGAL TREATMENT
     Route: 042
     Dates: start: 20141108, end: 20141121
  6. CEFTAROLINE FOSAMIL [Suspect]
     Active Substance: CEFTAROLINE FOSAMIL
     Indication: MENINGITIS
  7. CEFTAROLINE FOSAMIL [Suspect]
     Active Substance: CEFTAROLINE FOSAMIL
     Indication: LOBAR PNEUMONIA
     Dosage: 1200 MG
     Route: 042
     Dates: start: 20141112, end: 20141119
  8. CILASPEN [Suspect]
     Active Substance: CILASTATIN SODIUM\IMIPENEM
     Indication: MENINGITIS
     Dosage: 3 GRAM
     Route: 028
     Dates: start: 20141102, end: 20141105
  9. MEROPENEM-VERO (NON AZ PRODUCT) [Suspect]
     Active Substance: MEROPENEM
     Indication: ANTIBIOTIC PROPHYLAXIS
     Dosage: 6 GRAM
     Route: 042
     Dates: start: 20141105, end: 20141119
  10. MEROPENEM-VERO (NON AZ PRODUCT) [Suspect]
     Active Substance: MEROPENEM
     Indication: MENINGITIS

REACTIONS (2)
  - Pseudomembranous colitis [Recovering/Resolving]
  - Clostridium test positive [Unknown]

NARRATIVE: CASE EVENT DATE: 20141118
